FAERS Safety Report 7513242-3 (Version None)
Quarter: 2011Q2

REPORT INFORMATION
  Report Type: 
  Country: None (occurrence: None)
  Receive Date: 20110531
  Receipt Date: 20110321
  Transmission Date: 20111010
  Serious: Yes (Hospitalization, Other)
  Sender: FDA-Public Use
  Company Number: US-BAYER-2010-002986

PATIENT
  Age: 30 Year
  Sex: Female
  Weight: 99.773 kg

DRUGS (10)
  1. YASMIN [Suspect]
     Indication: MENORRHAGIA
     Dosage: UNK
     Route: 048
     Dates: start: 20060801, end: 20080801
  2. NSAID'S [Concomitant]
  3. TRAMADOL [Concomitant]
     Indication: NECK PAIN
     Dosage: UNK
     Dates: start: 20080801, end: 20080901
  4. LITHIUM CARBONATE [Concomitant]
     Dosage: 300 MG, UNK
  5. BUSPIRONE HCL [Concomitant]
     Indication: ANXIETY
  6. ANTIBIOTICS [Concomitant]
  7. DROSPIRENONE AND ETHINYL ESTRADIOL [Suspect]
     Indication: MENSTRUATION IRREGULAR
     Dosage: UNK
     Dates: start: 20080801, end: 20080901
  8. EFFEXOR [Concomitant]
     Indication: BIPOLAR II DISORDER
     Dosage: UNK
     Dates: start: 20030101
  9. LAMICTAL [Concomitant]
     Dosage: 25 MG, UNK
  10. WELLBUTRIN XL [Concomitant]

REACTIONS (4)
  - NAUSEA [None]
  - CHOLELITHIASIS [None]
  - CHOLECYSTITIS CHRONIC [None]
  - ABDOMINAL PAIN [None]
